FAERS Safety Report 19514651 (Version 1)
Quarter: 2021Q3

REPORT INFORMATION
  Report Type: Spontaneous
  Country: JP (occurrence: JP)
  Receive Date: 20210709
  Receipt Date: 20210709
  Transmission Date: 20211014
  Serious: Yes (Other)
  Sender: FDA-Public Use
  Company Number: JP-MYLANLABS-2021M1040579

PATIENT
  Age: 76 Year
  Sex: Female

DRUGS (1)
  1. PREDNISOLONE TABLETS 1MG ^PFIZER^ [Suspect]
     Active Substance: PREDNISOLONE
     Indication: POLYMYALGIA RHEUMATICA
     Dosage: UNK
     Route: 065
     Dates: start: 202005, end: 20210514

REACTIONS (3)
  - Steroid withdrawal syndrome [Unknown]
  - Rotator cuff syndrome [Unknown]
  - Arthralgia [Unknown]
